FAERS Safety Report 8407485-4 (Version None)
Quarter: 2012Q2

REPORT INFORMATION
  Report Type: 
  Country: None (occurrence: None)
  Receive Date: 20120604
  Receipt Date: 20120530
  Transmission Date: 20120825
  Serious: Yes (Other)
  Sender: FDA-Public Use
  Company Number: US-PFIZER INC-2012095351

PATIENT
  Sex: Male

DRUGS (1)
  1. DEPO-TESTOSTERONE [Suspect]
     Indication: BLOOD TESTOSTERONE DECREASED
     Dosage: 100 MG, WEEKLY
     Route: 030

REACTIONS (3)
  - OESTRADIOL INCREASED [None]
  - POLYCYTHAEMIA [None]
  - HAEMATOCRIT INCREASED [None]
